FAERS Safety Report 5624119-2 (Version None)
Quarter: 2008Q1

REPORT INFORMATION
  Report Type: 
  Country: None (occurrence: None)
  Receive Date: 20080213
  Receipt Date: 20080204
  Transmission Date: 20080703
  Serious: Yes (Other)
  Sender: FDA-Public Use
  Company Number: CA-JNJFOC-20080201176

PATIENT
  Sex: Male
  Weight: 102.3 kg

DRUGS (2)
  1. REMICADE [Suspect]
     Indication: CROHN'S DISEASE
     Route: 042
  2. SOLU-CORTEF [Concomitant]
     Indication: PREMEDICATION
     Route: 042

REACTIONS (4)
  - BLOOD PRESSURE INCREASED [None]
  - HAEMORRHAGE [None]
  - INFUSION RELATED REACTION [None]
  - VISION BLURRED [None]
